FAERS Safety Report 4835367-3 (Version None)
Quarter: 2005Q4

REPORT INFORMATION
  Report Type: 
  Country: None (occurrence: None)
  Receive Date: 20051114
  Receipt Date: 20051031
  Transmission Date: 20060501
  Serious: Yes (Other)
  Sender: FDA-Public Use
  Company Number: USA0511112576

PATIENT
  Sex: Male
  Weight: 95 kg

DRUGS (2)
  1. STRATTERA [Suspect]
     Dosage: 120 MG
  2. SYMBYAX-OLANZPINE 6MG / FLUOXETINE 50MG (OLANZAPIN [Suspect]

REACTIONS (1)
  - GRAND MAL CONVULSION [None]
